FAERS Safety Report 9382547 (Version 3)
Quarter: 2013Q3

REPORT INFORMATION
  Report Type: Spontaneous
  Country: US (occurrence: US)
  Receive Date: 20130703
  Receipt Date: 20130722
  Transmission Date: 20140515
  Serious: Yes (Hospitalization)
  Sender: FDA-Public Use
  Company Number: US-JNJFOC-20130618877

PATIENT
  Age: 86 Year
  Sex: Male
  Weight: 70.4 kg

DRUGS (19)
  1. XARELTO [Suspect]
     Indication: THROMBOSIS
     Route: 048
     Dates: start: 20130123
  2. CILOSTAZOL [Suspect]
     Indication: PERIPHERAL ARTERIAL OCCLUSIVE DISEASE
     Route: 048
  3. LANTUS [Concomitant]
     Route: 065
  4. PERCOCET [Concomitant]
     Route: 065
  5. SENOKOT [Concomitant]
     Route: 065
  6. MIRALAX [Concomitant]
     Route: 065
  7. TRAZODONE [Concomitant]
     Route: 065
  8. ZANTAC [Concomitant]
     Route: 065
  9. ZENPEP [Concomitant]
     Route: 065
  10. ZOLOFT [Concomitant]
     Route: 065
  11. HUMALOG [Concomitant]
     Route: 065
  12. CLARITIN [Concomitant]
     Route: 065
  13. FLONASE [Concomitant]
     Route: 065
  14. MUCINEX [Concomitant]
     Route: 065
  15. TYLENOL [Concomitant]
     Route: 065
  16. PROVENTIL [Concomitant]
     Route: 065
  17. ZOFRAN [Concomitant]
     Route: 065
  18. METOPROLOL [Concomitant]
     Route: 065
  19. PRAVASTATIN [Concomitant]
     Route: 065

REACTIONS (3)
  - Upper gastrointestinal haemorrhage [Recovered/Resolved]
  - Haemorrhagic anaemia [Recovered/Resolved]
  - Melaena [Recovered/Resolved]
